FAERS Safety Report 5159491-3 (Version None)
Quarter: 2006Q4

REPORT INFORMATION
  Report Type: 
  Country: None (occurrence: None)
  Receive Date: 20061120
  Receipt Date: 20061113
  Transmission Date: 20070319
  Serious: Yes (Hospitalization)
  Sender: FDA-Public Use
  Company Number: 163-21880-06110656

PATIENT
  Sex: Female

DRUGS (2)
  1. REVLIMID [Suspect]
     Indication: MULTIPLE MYELOMA
     Dosage: 25 MG, 1 IN 1 D, ORAL
     Route: 048
     Dates: start: 20060825
  2. STEROID THERAPY [Suspect]
     Indication: MULTIPLE MYELOMA

REACTIONS (2)
  - OSTEOARTHRITIS [None]
  - WHITE BLOOD CELL COUNT DECREASED [None]
